FAERS Safety Report 25403440 (Version 3)
Quarter: 2025Q3

REPORT INFORMATION
  Report Type: Spontaneous
  Country: JP (occurrence: JP)
  Receive Date: 20250605
  Receipt Date: 20250710
  Transmission Date: 20251021
  Serious: Yes (Other)
  Sender: ORGANON
  Company Number: JP-ORGANON-O2505JPN003711

PATIENT
  Age: 84 Year
  Sex: Female

DRUGS (1)
  1. ALENDRONATE SODIUM [Suspect]
     Active Substance: ALENDRONATE SODIUM
     Indication: Osteoporosis prophylaxis
     Dosage: 35 MILLIGRAM, QW, EVERY MONDAY
     Route: 048
     Dates: end: 20250707

REACTIONS (5)
  - Faecaloma [Recovered/Resolved]
  - Constipation [Unknown]
  - Terminal insomnia [Unknown]
  - Product prescribing issue [Unknown]
  - Product use issue [Unknown]
